FAERS Safety Report 23910644 (Version 1)
Quarter: 2024Q2

REPORT INFORMATION
  Report Type: Spontaneous
  Country: US (occurrence: US)
  Receive Date: 20240528
  Receipt Date: 20240528
  Transmission Date: 20240715
  Serious: No
  Sender: FDA-Public Use
  Company Number: US-AVADEL CNS PHARMACEUTICALS, LLC-2024AVA00207

PATIENT
  Sex: Female

DRUGS (1)
  1. LUMRYZ [Suspect]
     Active Substance: SODIUM OXYBATE
     Dosage: UNK

REACTIONS (2)
  - Abdominal discomfort [Unknown]
  - Abdominal pain upper [Unknown]
